FAERS Safety Report 25236479 (Version 2)
Quarter: 2025Q2

REPORT INFORMATION
  Report Type: Spontaneous
  Country: BR (occurrence: BR)
  Receive Date: 20250424
  Receipt Date: 20250501
  Transmission Date: 20250717
  Serious: Yes (Death)
  Sender: BIOMARIN
  Company Number: BR-BIOMARINAP-BR-2025-165438

PATIENT

DRUGS (1)
  1. NAGLAZYME [Suspect]
     Active Substance: GALSULFASE
     Indication: Mucopolysaccharidosis VI
     Dosage: UNK UNK, QW
     Route: 065

REACTIONS (3)
  - Brain injury [Fatal]
  - Fall [Unknown]
  - Head injury [Unknown]

NARRATIVE: CASE EVENT DATE: 20250419
